FAERS Safety Report 17258303 (Version 1)
Quarter: 2020Q1

REPORT INFORMATION
  Report Type: Spontaneous
  Country: US (occurrence: US)
  Receive Date: 20200110
  Receipt Date: 20200110
  Transmission Date: 20200409
  Serious: No
  Sender: FDA-Public Use
  Company Number: US-GLENMARK PHARMACEUTICALS-2019GMK043155

PATIENT

DRUGS (1)
  1. MUPIROCIN OINTMENT USP, 2% [Suspect]
     Active Substance: MUPIROCIN
     Indication: DECUBITUS ULCER
     Dosage: UNK, QD [START DATE: LONG TIME AGO (UNSPECIFIED)]
     Route: 061

REACTIONS (1)
  - Product use in unapproved indication [Unknown]
